FAERS Safety Report 12820654 (Version 1)
Quarter: 2016Q4

REPORT INFORMATION
  Report Type: Report from Study
  Country: SE (occurrence: SE)
  Receive Date: 20161006
  Receipt Date: 20161006
  Transmission Date: 20170207
  Serious: Yes (Life-Threatening, Hospitalization, Other)
  Sender: FDA-Public Use
  Company Number: SE-INCYTE CORPORATION-2016IN005599

PATIENT
  Age: 75 Year
  Sex: Male
  Weight: 73.5 kg

DRUGS (1)
  1. JAKAVI [Suspect]
     Active Substance: RUXOLITINIB
     Indication: PRIMARY MYELOFIBROSIS
     Dosage: 5 MG, BID
     Route: 048
     Dates: start: 20160219

REACTIONS (8)
  - Second primary malignancy [Recovering/Resolving]
  - Sepsis [Recovering/Resolving]
  - Haemochromatosis [Recovering/Resolving]
  - Skin lesion [Recovering/Resolving]
  - Basal cell carcinoma [Recovering/Resolving]
  - Postoperative wound infection [Recovering/Resolving]
  - Staphylococcal infection [Unknown]
  - Infection [Recovering/Resolving]

NARRATIVE: CASE EVENT DATE: 20160808
